FAERS Safety Report 4640292-7 (Version None)
Quarter: 2005Q2

REPORT INFORMATION
  Report Type: 
  Country: None (occurrence: None)
  Receive Date: 20050419
  Receipt Date: 20050413
  Transmission Date: 20051028
  Serious: Yes (Hospitalization, Disabling)
  Sender: FDA-Public Use
  Company Number: 213231

PATIENT
  Age: 68 Year
  Sex: Female
  Weight: 51.7 kg

DRUGS (5)
  1. AVASTIN [Suspect]
     Indication: COLORECTAL CANCER METASTATIC
     Dosage: 5 MG/KG, Q2W, INTRAVENOUS
     Route: 042
     Dates: start: 20040610, end: 20050105
  2. COMPAZINE [Concomitant]
  3. IMODIUM [Concomitant]
  4. ATIVAN [Concomitant]
  5. NEXIUM [Concomitant]

REACTIONS (6)
  - ASPIRATION [None]
  - COMA [None]
  - CONVULSION [None]
  - MENTAL DISORDER [None]
  - PNEUMONIA [None]
  - SUBCLAVIAN VEIN THROMBOSIS [None]
